FAERS Safety Report 9669500 (Version 3)
Quarter: 2014Q2

REPORT INFORMATION
  Report Type: Spontaneous
  Country: GB (occurrence: GB)
  Receive Date: 20131105
  Receipt Date: 20140605
  Transmission Date: 20141212
  Serious: Yes (Death, Congenital Anomaly, Other)
  Sender: FDA-Public Use
  Company Number: GB-GILEAD-2013-0086847

PATIENT
  Sex: Female

DRUGS (8)
  1. TRUVADA [Suspect]
     Indication: HIV INFECTION
     Dosage: 1 DF, QD
     Route: 064
     Dates: start: 20130201, end: 20130214
  2. TRUVADA [Suspect]
     Dosage: 1 DF, QD
     Route: 064
     Dates: start: 20130319, end: 20130521
  3. KALETRA [Suspect]
     Indication: HIV INFECTION
     Dosage: 2 DF, BID
     Route: 064
     Dates: start: 20130201, end: 20130214
  4. ISENTRESS [Suspect]
     Indication: HIV INFECTION
     Dosage: 400 MG, BID
     Route: 064
     Dates: start: 20130319
  5. METOCLOPRAMIDE [Concomitant]
     Indication: NAUSEA
     Route: 064
  6. BUCCASTEM [Concomitant]
     Indication: NAUSEA
     Route: 064
  7. METHYLDOPA [Concomitant]
     Indication: HYPERTENSION
     Route: 064
  8. LABETALOL [Concomitant]
     Dosage: UNK

REACTIONS (13)
  - Intraventricular haemorrhage [Fatal]
  - Cerebral infarction [Not Recovered/Not Resolved]
  - Necrosis [Not Recovered/Not Resolved]
  - Thymus hypoplasia [Not Recovered/Not Resolved]
  - Respiratory failure [Not Recovered/Not Resolved]
  - Metabolic acidosis [Not Recovered/Not Resolved]
  - Hypotension [Not Recovered/Not Resolved]
  - Hypotonia [Not Recovered/Not Resolved]
  - Cardiac failure [Not Recovered/Not Resolved]
  - Anaemia [Not Recovered/Not Resolved]
  - Hydrocephalus [Not Recovered/Not Resolved]
  - Renal failure acute [Not Recovered/Not Resolved]
  - Renal tubular necrosis [Not Recovered/Not Resolved]
